FAERS Safety Report 6519283-7 (Version None)
Quarter: 2009Q4

REPORT INFORMATION
  Report Type: 
  Country: None (occurrence: None)
  Receive Date: 20091228
  Receipt Date: 20091217
  Transmission Date: 20100525
  Serious: Yes (Other)
  Sender: FDA-Public Use
  Company Number: US-JNJFOC-20091205332

PATIENT
  Sex: Female
  Weight: 90.72 kg

DRUGS (1)
  1. REMICADE [Suspect]
     Indication: PSORIATIC ARTHROPATHY
     Dosage: RECEIVED 3-4 DOSES
     Route: 042

REACTIONS (2)
  - ADVERSE DRUG REACTION [None]
  - MYALGIA [None]
